FAERS Safety Report 10812297 (Version 1)
Quarter: 2015Q1

REPORT INFORMATION
  Report Type: Spontaneous
  Country: US (occurrence: None)
  Receive Date: 20150213
  Receipt Date: 20150213
  Transmission Date: 20150721
  Serious: Yes (Hospitalization)
  Sender: FDA-Public Use
  Company Number: None

PATIENT
  Age: 66 Year
  Sex: Male
  Weight: 75.4 kg

DRUGS (4)
  1. METHOTREXATE [Suspect]
     Active Substance: METHOTREXATE
     Dosage: CYCLE
     Dates: end: 20140123
  2. WINCRSTINE SULFATE [Suspect]
     Active Substance: VINCRISTINE SULFATE
     Dates: end: 20150123
  3. RITUXIMAB [Suspect]
     Active Substance: RITUXIMAB
     Dates: end: 20150123
  4. PROCARBAZINE [Suspect]
     Active Substance: PROCARBAZINE
     Dates: end: 20150127

REACTIONS (5)
  - Hyponatraemia [None]
  - Delirium [None]
  - Hypothermia [None]
  - Encephalopathy [None]
  - Inappropriate antidiuretic hormone secretion [None]

NARRATIVE: CASE EVENT DATE: 20150129
